FAERS Safety Report 6956209-6 (Version None)
Quarter: 2010Q3

REPORT INFORMATION
  Report Type: 
  Country: None (occurrence: None)
  Receive Date: 20100830
  Receipt Date: 20100729
  Transmission Date: 20110219
  Serious: No
  Sender: FDA-Public Use
  Company Number: US-BAYER-201019040BCC

PATIENT
  Age: 69 Year
  Sex: Female
  Weight: 67 kg

DRUGS (7)
  1. ALEVE (CAPLET) [Suspect]
     Indication: PRODUCT USED FOR UNKNOWN INDICATION
     Dosage: TOTAL DAILY DOSE: 220 MG  UNIT DOSE: 220 MG
     Route: 048
  2. ALEVE (CAPLET) [Suspect]
     Dosage: TOTAL DAILY DOSE: 220 MG  UNIT DOSE: 220 MG
     Route: 048
     Dates: start: 20100727
  3. LEVOTHYROXINE SODIUM [Concomitant]
     Route: 065
  4. BI-MART MULTIVITAMIN [Concomitant]
     Route: 065
  5. VITAMIN D [Concomitant]
     Route: 065
  6. OMEGA 3-6-9 [Concomitant]
     Route: 065
  7. VITAMIN E [Concomitant]
     Route: 065

REACTIONS (1)
  - HEADACHE [None]
